FAERS Safety Report 8462829-2 (Version None)
Quarter: 2012Q2

REPORT INFORMATION
  Report Type: 
  Country: None (occurrence: None)
  Receive Date: 20120625
  Receipt Date: 20120614
  Transmission Date: 20120825
  Serious: Yes (Other)
  Sender: FDA-Public Use
  Company Number: US-ASTRAZENECA-2011SE44674

PATIENT
  Age: 53 Year
  Sex: Female
  Weight: 77.1 kg

DRUGS (10)
  1. SEROQUEL [Suspect]
     Route: 048
  2. SEROQUEL [Suspect]
     Route: 048
  3. SEROQUEL [Suspect]
     Route: 048
  4. SEROQUEL [Suspect]
     Dosage: BREAKING IN HALF
     Route: 048
  5. SEROQUEL [Suspect]
     Dosage: BREAKING IN HALF
     Route: 048
  6. LISINOPRIL [Concomitant]
     Indication: BLOOD PRESSURE ABNORMAL
  7. SEROQUEL [Suspect]
     Indication: SLEEP DISORDER
     Route: 048
  8. SEROQUEL [Suspect]
     Indication: ANXIETY DISORDER
     Route: 048
  9. SEROQUEL [Suspect]
     Route: 048
  10. CELEXA [Concomitant]
     Indication: PAIN

REACTIONS (13)
  - FATIGUE [None]
  - MIGRAINE [None]
  - OFF LABEL USE [None]
  - ADVERSE EVENT [None]
  - SLEEP DISORDER [None]
  - FIBROMYALGIA [None]
  - THERAPEUTIC RESPONSE UNEXPECTED [None]
  - INSOMNIA [None]
  - DYSURIA [None]
  - PSYCHOMOTOR HYPERACTIVITY [None]
  - INTENTIONAL DRUG MISUSE [None]
  - CONVULSION [None]
  - DRUG DOSE OMISSION [None]
